FAERS Safety Report 6266330-6 (Version None)
Quarter: 2009Q3

REPORT INFORMATION
  Report Type: 
  Country: None (occurrence: None)
  Receive Date: 20090713
  Receipt Date: 20090707
  Transmission Date: 20100115
  Serious: Yes (Life-Threatening, Other)
  Sender: FDA-Public Use
  Company Number: PHEH2009US06889

PATIENT
  Sex: Male
  Weight: 113.29 kg

DRUGS (14)
  1. TEKTURNA [Suspect]
     Indication: HYPERTENSION
     Dosage: 150 MG, UNK
     Dates: start: 20080317, end: 20080401
  2. TEKTURNA [Suspect]
     Dosage: 150 MG, QD
     Route: 048
     Dates: start: 20090202, end: 20090323
  3. TEKTURNA [Suspect]
     Dosage: 300 MG, QD
     Dates: start: 20090324, end: 20090330
  4. AMLODIPINE [Concomitant]
     Dosage: 10 MG
     Route: 048
  5. DIOVAN [Concomitant]
     Dosage: 320/25
     Route: 048
  6. SIMVASTATIN [Concomitant]
     Dosage: 40 MG
     Route: 048
  7. ATENOLOL [Concomitant]
     Dosage: 50 MG
     Route: 048
  8. PLAVIX [Concomitant]
     Dosage: 75 MG
  9. DOXAZOSIN MESYLATE [Concomitant]
     Dosage: 4 MG
     Route: 048
  10. GLIPIZIDE [Concomitant]
     Dosage: 5 MG, BID
     Route: 048
  11. CELEXA [Concomitant]
     Dosage: 40 MG
     Route: 048
  12. PEPCID [Concomitant]
     Dosage: 10 MG
     Route: 048
  13. AMBIEN [Concomitant]
  14. FENOFIBRATE [Concomitant]
     Dosage: 130 MG
     Route: 048

REACTIONS (4)
  - DYSPNOEA [None]
  - FEELING ABNORMAL [None]
  - PANIC ATTACK [None]
  - VITAL CAPACITY DECREASED [None]
